FAERS Safety Report 25113938 (Version 1)
Quarter: 2025Q1

REPORT INFORMATION
  Report Type: Spontaneous
  Country: CN (occurrence: CN)
  Receive Date: 20250324
  Receipt Date: 20250324
  Transmission Date: 20250409
  Serious: Yes (Hospitalization, Disabling)
  Sender: JOHNSON AND JOHNSON
  Company Number: CN-JNJFOC-20250358320

PATIENT
  Age: 65 Year
  Sex: Male
  Weight: 61 kg

DRUGS (2)
  1. DARZALEX FASPRO [Suspect]
     Active Substance: DARATUMUMAB\HYALURONIDASE-FIHJ
     Indication: Plasma cell myeloma
     Route: 058
     Dates: start: 20250109, end: 20250109
  2. LENALIDOMIDE [Concomitant]
     Active Substance: LENALIDOMIDE
     Indication: Plasma cell myeloma
     Route: 048
     Dates: start: 20250110, end: 20250126

REACTIONS (2)
  - Sinus tachycardia [Recovering/Resolving]
  - Heart rate abnormal [Recovering/Resolving]

NARRATIVE: CASE EVENT DATE: 20250119
